FAERS Safety Report 11089394 (Version 1)
Quarter: 2015Q2

REPORT INFORMATION
  Report Type: Spontaneous
  Country: US (occurrence: None)
  Receive Date: 20150501
  Receipt Date: 20150501
  Transmission Date: 20150821
  Serious: Yes (Hospitalization)
  Sender: FDA-Public Use
  Company Number: US-H14001-15-00627

PATIENT
  Age: 69 Year
  Sex: Male

DRUGS (3)
  1. LONG-ACTING METROPROLOL (METOPROLOL) [Concomitant]
  2. HYDROCHLOROTHIAZIDE (HYDROCHLOROTHIAZIDE) [Concomitant]
     Active Substance: HYDROCHLOROTHIAZIDE
  3. DIGOXIN. [Suspect]
     Active Substance: DIGOXIN
     Indication: PRODUCT USED FOR UNKNOWN INDICATION

REACTIONS (6)
  - Fatigue [None]
  - Nausea [None]
  - Dizziness [None]
  - Toxicity to various agents [None]
  - Electrocardiogram ST segment abnormal [None]
  - Sinoatrial block [None]
